FAERS Safety Report 5740331-6 (Version None)
Quarter: 2008Q2

REPORT INFORMATION
  Report Type: 
  Country: None (occurrence: None)
  Receive Date: 20080516
  Receipt Date: 20080509
  Transmission Date: 20081010
  Serious: Yes (Hospitalization)
  Sender: FDA-Public Use
  Company Number: DE-ABBOTT-08P-062-0451198-00

PATIENT
  Sex: Female

DRUGS (7)
  1. HUMIRA [Suspect]
     Indication: PSORIATIC ARTHROPATHY
     Route: 058
     Dates: start: 20070720
  2. GLUCOCORTICOIDS [Concomitant]
     Indication: PSORIATIC ARTHROPATHY
  3. MORPHINE [Concomitant]
     Indication: PAIN
  4. LERCANIDIPIN [Concomitant]
     Indication: HYPERTENSION
     Route: 048
  5. TORSEMIDE [Concomitant]
     Indication: HYPERTENSION
  6. INSULINE [Concomitant]
     Indication: DIABETES MELLITUS
  7. METOPROLOL TARTRATE [Concomitant]
     Indication: HYPERTENSION
     Route: 048

REACTIONS (1)
  - ARTHROPATHY [None]
